FAERS Safety Report 4460129-9 (Version None)
Quarter: 2004Q3

REPORT INFORMATION
  Report Type: 
  Country: None (occurrence: None)
  Receive Date: 20040928
  Receipt Date: 20031222
  Transmission Date: 20050211
  Serious: No
  Sender: FDA-Public Use
  Company Number: US-GLAXOSMITHKLINE-A0443941A

PATIENT
  Age: 77 Year
  Sex: Female

DRUGS (5)
  1. SEREVENT [Suspect]
     Indication: BRONCHITIS
     Dosage: 1PUFF TWICE PER DAY
     Route: 055
     Dates: start: 20030916, end: 20031222
  2. ATROVENT [Concomitant]
  3. ALBUTEROL [Concomitant]
  4. PREMARIN [Concomitant]
  5. MULTI-VITAMIN [Concomitant]

REACTIONS (2)
  - ASTHMA [None]
  - BRONCHITIS [None]
